FAERS Safety Report 4383614-7 (Version None)
Quarter: 2004Q2

REPORT INFORMATION
  Report Type: 
  Country: None (occurrence: None)
  Receive Date: 20040618
  Receipt Date: 20040604
  Transmission Date: 20050107
  Serious: Yes (Hospitalization)
  Sender: FDA-Public Use
  Company Number: 2004218593JP

PATIENT
  Age: 75 Year
  Sex: Male

DRUGS (8)
  1. CAMPTOSAR(IRINOTECAN) SOLUTION, STERILE [Suspect]
     Indication: NON-SMALL CELL LUNG CANCER STAGE IV
     Dosage: 72.5 MG, CYCLE 1, IV DRIP
     Route: 041
     Dates: start: 20030423, end: 20030423
  2. NEOCEL (DOCETAXEL), SOLUTION, STERILE [Suspect]
     Indication: NON-SMALL CELL LUNG CANCER STAGE IV
     Dosage: 50 MG/M2, CYCLE 1, IV
     Route: 042
     Dates: start: 20030424, end: 20030424
  3. HUMULIN R [Concomitant]
  4. ZANTAC [Concomitant]
  5. MUCOSTA (REBAMIPIDE) [Concomitant]
  6. HANGE SHASHIN [Concomitant]
  7. DEPAS (ETIZOLAM) [Concomitant]
  8. FERROMIA (FERROUS CITRATE) [Concomitant]

REACTIONS (8)
  - DIARRHOEA [None]
  - LEUKOPENIA [None]
  - MALIGNANT NEOPLASM PROGRESSION [None]
  - NEUTROPENIA [None]
  - NON-SMALL CELL LUNG CANCER [None]
  - PNEUMONIA [None]
  - PNEUMONITIS [None]
  - THROMBOCYTOPENIA [None]
